FAERS Safety Report 5147517-2 (Version None)
Quarter: 2006Q4

REPORT INFORMATION
  Report Type: 
  Country: None (occurrence: None)
  Receive Date: 20061109
  Receipt Date: 20061030
  Transmission Date: 20070319
  Serious: Yes (Death)
  Sender: FDA-Public Use
  Company Number: US-ABBOTT-06P-163-0348865-00

PATIENT
  Age: 32 Year

DRUGS (12)
  1. VALPROIC ACID [Suspect]
     Indication: DRUG USE FOR UNKNOWN INDICATION
     Dosage: INGESTION
     Route: 048
  2. VALPROIC ACID [Suspect]
     Route: 051
  3. VALPROIC ACID [Suspect]
     Route: 065
  4. NPH INSULIN [Suspect]
     Indication: DRUG USE FOR UNKNOWN INDICATION
     Dosage: INGESTION
     Route: 048
  5. NPH INSULIN [Suspect]
     Route: 051
  6. NPH INSULIN [Suspect]
     Route: 065
  7. AMPHETAMINE [Suspect]
     Indication: DRUG USE FOR UNKNOWN INDICATION
     Dosage: INGESTION
     Route: 048
  8. AMPHETAMINE [Suspect]
     Route: 051
  9. AMPHETAMINE [Suspect]
     Route: 065
  10. ADDITIONAL SUBSTANCES NOT LISTED [Suspect]
     Indication: DRUG USE FOR UNKNOWN INDICATION
     Dosage: INGESTION
     Route: 048
  11. ADDITIONAL SUBSTANCES NOT LISTED [Suspect]
     Route: 051
  12. ADDITIONAL SUBSTANCES NOT LISTED [Suspect]
     Route: 065

REACTIONS (4)
  - CARDIAC ARREST [None]
  - CARDIO-RESPIRATORY ARREST [None]
  - COMPLETED SUICIDE [None]
  - RESPIRATORY ARREST [None]
